FAERS Safety Report 8849631 (Version 2)
Quarter: 2012Q4

REPORT INFORMATION
  Report Type: Report from Study
  Country: US (occurrence: US)
  Receive Date: 20121019
  Receipt Date: 20121106
  Transmission Date: 20130627
  Serious: No
  Sender: FDA-Public Use
  Company Number: US-VERTEX PHARMACEUTICAL INC.-2012-022764

PATIENT
  Sex: Female

DRUGS (5)
  1. TELAPREVIR [Suspect]
     Indication: HEPATITIS C
     Dosage: 750 mg, tid
     Route: 048
  2. PEGASYS [Suspect]
     Indication: HEPATITIS C
     Dosage: 180 ?g, weekly
  3. RIBAPAK [Suspect]
     Indication: HEPATITIS C
  4. AMBIEN [Concomitant]
     Dosage: 10 mg, UNK
  5. METHADONE [Concomitant]
     Dosage: 5 mg, UNK

REACTIONS (2)
  - Incorrect dose administered [Unknown]
  - Nausea [Unknown]
